FAERS Safety Report 8899135 (Version 1)
Quarter: 2012Q4

REPORT INFORMATION
  Report Type: 
  Country: US (occurrence: US)
  Receive Date: 20121108
  Receipt Date: 20121108
  Transmission Date: 20130627
  Serious: No
  Sender: FDA-Public Use
  Company Number: US-AMGEN-USASP2012027492

PATIENT
  Age: 31 Year
  Sex: Female
  Weight: 99 kg

DRUGS (11)
  1. ENBREL [Suspect]
     Indication: RHEUMATOID ARTHRITIS
     Dosage: 50 mg, qwk
     Route: 058
  2. PREDNISONE [Concomitant]
     Dosage: 10 mg, UNK
     Route: 048
  3. MOBIC [Concomitant]
     Dosage: 15 mg, UNK
     Route: 048
  4. ARAVA [Concomitant]
     Dosage: 20 mg, UNK
     Route: 048
  5. PRILOSEC                           /00661201/ [Concomitant]
     Dosage: 20 mg, UNK
     Route: 048
  6. BUMEX [Concomitant]
     Dosage: 0.5 mg, UNK
  7. ZYRTEC ALLERGY [Concomitant]
     Dosage: 10 mg, UNK
     Route: 048
  8. POTASSIUM [Concomitant]
     Route: 048
  9. IRON [Concomitant]
     Dosage: 18 mg, UNK
     Route: 048
  10. MULTI TABS [Concomitant]
     Route: 048
  11. CALCIUM [Concomitant]
     Route: 048

REACTIONS (3)
  - Increased tendency to bruise [Unknown]
  - Impaired healing [Unknown]
  - Sinusitis [Recovered/Resolved]
